FAERS Safety Report 6187679-1 (Version None)
Quarter: 2009Q2

REPORT INFORMATION
  Report Type: 
  Country: None (occurrence: None)
  Receive Date: 20090511
  Receipt Date: 20090427
  Transmission Date: 20091009
  Serious: Yes (Other)
  Sender: FDA-Public Use
  Company Number: 264102

PATIENT
  Age: 79 Year
  Sex: Male
  Weight: 70 kg

DRUGS (8)
  1. PAMIDRONATE DISODIUM [Suspect]
     Indication: BONE DISORDER
     Dosage: 90 MG, ONCE A MONTH, INTRAVENOUS
     Route: 042
     Dates: start: 20060822, end: 20070828
  2. ZOLEDRONIC ACID [Suspect]
     Indication: BONE DISORDER
     Dosage: 4 MG, ONCE A MONTH, INTRAVENOUS
     Route: 042
     Dates: start: 20050815, end: 20061001
  3. ALFUZOSIN HCL [Concomitant]
  4. PROSTATISM (PROSTATISM) [Concomitant]
  5. ASPIRIN [Concomitant]
  6. DIGOXIN [Concomitant]
  7. LEVOTHYROXINE SODIUM [Concomitant]
  8. TRAZODONE HCL [Concomitant]

REACTIONS (4)
  - DEBRIDEMENT [None]
  - OSTEONECROSIS [None]
  - PAIN IN JAW [None]
  - TOOTH EXTRACTION [None]
